FAERS Safety Report 15885420 (Version 1)
Quarter: 2019Q1

REPORT INFORMATION
  Report Type: Spontaneous
  Country: FR (occurrence: FR)
  Receive Date: 20190129
  Receipt Date: 20190129
  Transmission Date: 20190417
  Serious: Yes (Other)
  Sender: FDA-Public Use
  Company Number: FR-MYLANLABS-2019M1007558

PATIENT
  Age: 51 Year
  Sex: Female
  Weight: 97 kg

DRUGS (3)
  1. BILTRICIDE [Suspect]
     Active Substance: PRAZIQUANTEL
     Indication: PAIN
     Dosage: 1 DOSAGE FORM, QW
     Route: 048
     Dates: start: 20171225
  2. ZENTEL [Suspect]
     Active Substance: ALBENDAZOLE
     Indication: PAIN
     Dosage: 1 DOSAGE FORM, QW
     Route: 048
     Dates: start: 20171225
  3. TELMISARTAN. [Suspect]
     Active Substance: TELMISARTAN
     Indication: HYPERTENSION
     Dosage: 1 DOSAGE FORM, QD
     Route: 048
     Dates: start: 2013

REACTIONS (1)
  - Hepatitis [Not Recovered/Not Resolved]

NARRATIVE: CASE EVENT DATE: 20180514
